FAERS Safety Report 7030525-4 (Version None)
Quarter: 2010Q4

REPORT INFORMATION
  Report Type: 
  Country: None (occurrence: None)
  Receive Date: 20101006
  Receipt Date: 20100928
  Transmission Date: 20110411
  Serious: Yes (Hospitalization)
  Sender: FDA-Public Use
  Company Number: JP-GENZYME-FABR-1001587

PATIENT
  Sex: Male
  Weight: 67 kg

DRUGS (2)
  1. FABRAZYME [Suspect]
     Indication: FABRY'S DISEASE
     Dosage: 0.5 MG/KG, Q4W
     Route: 042
     Dates: start: 20091112
  2. FABRAZYME [Suspect]
     Dosage: 1 MG/KG, Q2W
     Route: 042
     Dates: start: 20060808

REACTIONS (1)
  - SKIN ULCER [None]
